FAERS Safety Report 10005787 (Version 1)
Quarter: 2014Q1

REPORT INFORMATION
  Report Type: Spontaneous
  Country: US (occurrence: US)
  Receive Date: 20140313
  Receipt Date: 20140313
  Transmission Date: 20141002
  Serious: No
  Sender: FDA-Public Use
  Company Number: US-BIOGENIDEC-2014BI021476

PATIENT
  Age: 39 Year
  Sex: Female

DRUGS (4)
  1. TECFIDERA [Suspect]
     Indication: MULTIPLE SCLEROSIS
     Route: 048
     Dates: start: 20131127
  2. PROTONIX [Concomitant]
  3. PHENERGAN [Concomitant]
  4. ZOFRAN [Concomitant]

REACTIONS (4)
  - Weight increased [Unknown]
  - Flushing [Unknown]
  - Pruritus [Unknown]
  - Nausea [Unknown]
